FAERS Safety Report 19941573 (Version 8)
Quarter: 2024Q4

REPORT INFORMATION
  Report Type: Spontaneous
  Country: US (occurrence: US)
  Receive Date: 20211012
  Receipt Date: 20241011
  Transmission Date: 20250115
  Serious: Yes (Disabling, Other)
  Sender: ORGANON
  Company Number: US-ORGANON-O2110USA000713

PATIENT
  Sex: Female

DRUGS (1)
  1. SINGULAIR [Suspect]
     Active Substance: MONTELUKAST SODIUM
     Dosage: 10 MILLIGRAM (10 OR 20 MG, QHS))
     Route: 048
     Dates: end: 20130507

REACTIONS (56)
  - Neuropsychological symptoms [Not Recovered/Not Resolved]
  - Bipolar disorder [Not Recovered/Not Resolved]
  - Major depression [Not Recovered/Not Resolved]
  - Suicidal ideation [Not Recovered/Not Resolved]
  - Attention deficit hyperactivity disorder [Not Recovered/Not Resolved]
  - Carpal tunnel syndrome [Not Recovered/Not Resolved]
  - Nerve injury [Not Recovered/Not Resolved]
  - Irregular sleep phase [Not Recovered/Not Resolved]
  - Paranoia [Not Recovered/Not Resolved]
  - Speech disorder [Not Recovered/Not Resolved]
  - Personality change [Unknown]
  - Confusional state [Unknown]
  - Sleep disorder [Not Recovered/Not Resolved]
  - Anxiety [Not Recovered/Not Resolved]
  - Disturbance in attention [Not Recovered/Not Resolved]
  - Memory impairment [Not Recovered/Not Resolved]
  - Discomfort [Unknown]
  - Diarrhoea [Not Recovered/Not Resolved]
  - Nausea [Not Recovered/Not Resolved]
  - Abdominal discomfort [Unknown]
  - Arthralgia [Unknown]
  - Multiple allergies [Unknown]
  - Sinus disorder [Unknown]
  - Eye infection [Unknown]
  - Dyspepsia [Unknown]
  - Panic attack [Unknown]
  - Nervousness [Unknown]
  - Irritability [Unknown]
  - Dizziness [Not Recovered/Not Resolved]
  - Vomiting [Unknown]
  - Vision blurred [Unknown]
  - Ocular discomfort [Unknown]
  - Vertigo [Unknown]
  - Dysphonia [Not Recovered/Not Resolved]
  - Limb discomfort [Unknown]
  - Musculoskeletal stiffness [Unknown]
  - Head injury [Unknown]
  - Pain [Unknown]
  - Amnesia [Unknown]
  - Lethargy [Unknown]
  - Hypoaesthesia [Unknown]
  - Affective disorder [Unknown]
  - Coordination abnormal [Unknown]
  - Clumsiness [Unknown]
  - Fine motor skill dysfunction [Unknown]
  - Balance disorder [Unknown]
  - Parosmia [Not Recovered/Not Resolved]
  - Disturbance in attention [Unknown]
  - Psychomotor hyperactivity [Unknown]
  - Nasal congestion [Not Recovered/Not Resolved]
  - Seasonal allergy [Not Recovered/Not Resolved]
  - Sinus pain [Not Recovered/Not Resolved]
  - Blood pressure increased [Not Recovered/Not Resolved]
  - Dysphagia [Not Recovered/Not Resolved]
  - Headache [Not Recovered/Not Resolved]
  - Appetite disorder [Not Recovered/Not Resolved]

NARRATIVE: CASE EVENT DATE: 20120101
